FAERS Safety Report 10262640 (Version 1)
Quarter: 2014Q2

REPORT INFORMATION
  Report Type: Report from Study
  Country: US (occurrence: US)
  Receive Date: 20140626
  Receipt Date: 20140626
  Transmission Date: 20141212
  Serious: Yes (Death)
  Sender: FDA-Public Use
  Company Number: US-MYLANLABS-2013S1009930

PATIENT
  Age: 74 Year
  Sex: Male

DRUGS (1)
  1. CLOZAPINE TABLETS [Suspect]
     Route: 048
     Dates: start: 201210, end: 201303

REACTIONS (1)
  - Death [Fatal]
